FAERS Safety Report 14209675 (Version 1)
Quarter: 2017Q4

REPORT INFORMATION
  Report Type: Spontaneous
  Country: US (occurrence: US)
  Receive Date: 20171121
  Receipt Date: 20171121
  Transmission Date: 20180321
  Serious: No
  Sender: FDA-Public Use
  Company Number: US-PFIZER INC-2017499111

PATIENT
  Age: 51 Year
  Sex: Female
  Weight: 99.79 kg

DRUGS (8)
  1. LORAZEPAM. [Suspect]
     Active Substance: LORAZEPAM
     Indication: PANIC ATTACK
  2. ATIVAN [Suspect]
     Active Substance: LORAZEPAM
     Indication: PANIC ATTACK
  3. VALIUM [Suspect]
     Active Substance: DIAZEPAM
     Indication: PANIC ATTACK
  4. XANAX [Suspect]
     Active Substance: ALPRAZOLAM
     Indication: ANXIETY
     Dosage: UNK
  5. VALIUM [Suspect]
     Active Substance: DIAZEPAM
     Indication: ANXIETY
     Dosage: UNK
  6. XANAX [Suspect]
     Active Substance: ALPRAZOLAM
     Indication: PANIC ATTACK
  7. LORAZEPAM. [Suspect]
     Active Substance: LORAZEPAM
     Indication: ANXIETY
     Dosage: UNK
  8. ATIVAN [Suspect]
     Active Substance: LORAZEPAM
     Indication: ANXIETY
     Dosage: UNK

REACTIONS (1)
  - Drug ineffective [Unknown]
